FAERS Safety Report 11410745 (Version 1)
Quarter: 2015Q3

REPORT INFORMATION
  Report Type: Spontaneous
  Country: CA (occurrence: CA)
  Receive Date: 20150824
  Receipt Date: 20150824
  Transmission Date: 20151125
  Serious: Yes (Other)
  Sender: FDA-Public Use
  Company Number: CA-MEDA-2015080048

PATIENT

DRUGS (11)
  1. CELEBREX [Suspect]
     Active Substance: CELECOXIB
  2. DURAGESIC MAT [Suspect]
     Active Substance: FENTANYL
     Route: 062
  3. TORADOL [Suspect]
     Active Substance: KETOROLAC TROMETHAMINE
  4. CESAMET [Suspect]
     Active Substance: NABILONE
  5. BOTOX [Suspect]
     Active Substance: ONABOTULINUMTOXINA
  6. CODEINE CONTIN [Suspect]
     Active Substance: CODEINE SULFATE
  7. TEGRETOL [Suspect]
     Active Substance: CARBAMAZEPINE
  8. CAFFEINE. [Suspect]
     Active Substance: CAFFEINE
  9. AMITRIPTYLINE [Suspect]
     Active Substance: AMITRIPTYLINE
  10. HYDROMORPHONE [Suspect]
     Active Substance: HYDROMORPHONE
     Route: 048
  11. OXYCONTIN [Suspect]
     Active Substance: OXYCODONE HYDROCHLORIDE

REACTIONS (2)
  - Drug dependence [Unknown]
  - Adverse drug reaction [Unknown]
